FAERS Safety Report 15111981 (Version 2)
Quarter: 2018Q3

REPORT INFORMATION
  Report Type: Spontaneous
  Country: RU (occurrence: RU)
  Receive Date: 20180705
  Receipt Date: 20180716
  Transmission Date: 20181010
  Serious: Yes (Hospitalization, Other)
  Sender: FDA-Public Use
  Company Number: RU-ASTRAZENECA-2017SE18675

PATIENT
  Age: 55 Year
  Sex: Female
  Weight: 67 kg

DRUGS (4)
  1. MANINIL [Concomitant]
     Active Substance: GLYBURIDE
  2. INSULIN [Concomitant]
     Active Substance: INSULIN NOS
  3. METFORMIN [Concomitant]
     Active Substance: METFORMIN HYDROCHLORIDE
  4. FORXIGA [Suspect]
     Active Substance: DAPAGLIFLOZIN
     Indication: TYPE 2 DIABETES MELLITUS
     Route: 048
     Dates: start: 2016, end: 201803

REACTIONS (4)
  - Dehydration [Recovering/Resolving]
  - Myocardial infarction [Unknown]
  - Weight decreased [Recovered/Resolved]
  - Urine output increased [Unknown]

NARRATIVE: CASE EVENT DATE: 2018
